FAERS Safety Report 10222747 (Version 1)
Quarter: 2014Q2

REPORT INFORMATION
  Report Type: Spontaneous
  Country: AR (occurrence: AR)
  Receive Date: 20140606
  Receipt Date: 20140606
  Transmission Date: 20141212
  Serious: Yes (Hospitalization)
  Sender: FDA-Public Use
  Company Number: AR-ABBVIE-14P-007-1243254-00

PATIENT
  Age: 76 Year
  Sex: Female

DRUGS (1)
  1. HUMIRA [Suspect]
     Indication: RHEUMATOID ARTHRITIS
     Dates: end: 201311

REACTIONS (5)
  - Weight decreased [Unknown]
  - Abdominal pain [Unknown]
  - Pyrexia [Unknown]
  - Pneumonia [Unknown]
  - Deep vein thrombosis [Unknown]
